FAERS Safety Report 5009350-1 (Version None)
Quarter: 2006Q2

REPORT INFORMATION
  Report Type: 
  Country: None (occurrence: None)
  Receive Date: 20060522
  Receipt Date: 20060508
  Transmission Date: 20061013
  Serious: Yes (Disabling, Other)
  Sender: FDA-Public Use
  Company Number: 2006002584

PATIENT
  Age: 57 Year
  Sex: Female
  Weight: 57.6068 kg

DRUGS (6)
  1. DEPO-MEDROL [Suspect]
     Indication: SCIATICA
     Dosage: 80 MG (80 MG, 1 IN 1 D), EPIDURAL
     Route: 008
     Dates: start: 20000126
  2. CELEBREX [Suspect]
     Indication: PAIN
  3. NEURONTIN [Suspect]
     Indication: SCIATICA
     Dosage: 900 MG (300 MG, 3 IN 1 D),
  4. BEXTRA [Suspect]
     Indication: PAIN
  5. PREMARIN [Concomitant]
  6. ZOCOR [Concomitant]

REACTIONS (29)
  - ABASIA [None]
  - ANXIETY [None]
  - ARACHNOIDITIS [None]
  - BACK PAIN [None]
  - BLOOD CHOLESTEROL INCREASED [None]
  - BURNING SENSATION [None]
  - CYSTITIS [None]
  - DEPRESSION [None]
  - DIFFICULTY IN WALKING [None]
  - DRUG INEFFECTIVE [None]
  - DYSSTASIA [None]
  - FLUID RETENTION [None]
  - HEADACHE [None]
  - HIGH DENSITY LIPOPROTEIN INCREASED [None]
  - IMPAIRED WORK ABILITY [None]
  - INSOMNIA [None]
  - LOW DENSITY LIPOPROTEIN INCREASED [None]
  - MUSCLE SPASMS [None]
  - MUSCLE TIGHTNESS [None]
  - NASAL DISORDER [None]
  - OEDEMA PERIPHERAL [None]
  - OFF LABEL USE [None]
  - ORAL INTAKE REDUCED [None]
  - PAIN IN EXTREMITY [None]
  - PARALYSIS [None]
  - SPEECH DISORDER [None]
  - SPINAL DISORDER [None]
  - SURGERY [None]
  - WEIGHT INCREASED [None]
